FAERS Safety Report 7384576-0 (Version None)
Quarter: 2011Q1

REPORT INFORMATION
  Report Type: 
  Country: None (occurrence: None)
  Receive Date: 20110322
  Receipt Date: 20110315
  Transmission Date: 20110831
  Serious: Yes (Other)
  Sender: FDA-Public Use
  Company Number: CL-299-2011

PATIENT
  Age: 35 Year
  Sex: Female

DRUGS (2)
  1. NYSTATIN [Suspect]
     Indication: VAGINITIS BACTERIAL
     Dosage: INTRAVAGINAL
     Route: 067
  2. METRONIDAZOLE [Suspect]
     Indication: VAGINITIS BACTERIAL
     Dosage: INTRAVAGINAL
     Route: 067

REACTIONS (1)
  - DRUG ERUPTION [None]
